FAERS Safety Report 7301005-3 (Version None)
Quarter: 2011Q1

REPORT INFORMATION
  Report Type: 
  Country: None (occurrence: None)
  Receive Date: 20110111
  Receipt Date: 20091203
  Transmission Date: 20110831
  Serious: Yes (Other)
  Sender: FDA-Public Use
  Company Number: 2009BH018747

PATIENT
  Sex: Male

DRUGS (2)
  1. VANCOMYCIN HCL [Suspect]
     Indication: PRODUCT USED FOR UNKNOWN INDICATION
     Dosage: IV
     Route: 042
  2. VANCOMYCIN HCL [Suspect]

REACTIONS (1)
  - RENAL FAILURE [None]
